FAERS Safety Report 7331670-6 (Version None)
Quarter: 2011Q1

REPORT INFORMATION
  Report Type: 
  Country: None (occurrence: None)
  Receive Date: 20110304
  Receipt Date: 20081217
  Transmission Date: 20110831
  Serious: Yes (Other)
  Sender: FDA-Public Use
  Company Number: US-BAYER-2011-005767

PATIENT
  Sex: Male
  Weight: 95.238 kg

DRUGS (15)
  1. HEPARIN [Concomitant]
     Dosage: 10000 UNITS
     Route: 042
     Dates: start: 20050124, end: 20050124
  2. ALBUMIN (HUMAN) [Concomitant]
     Indication: PRODUCT USED FOR UNKNOWN INDICATION
     Dosage: 12.5 GM
     Route: 042
     Dates: start: 20050124, end: 20050124
  3. PRIMACOR [Concomitant]
     Indication: PRODUCT USED FOR UNKNOWN INDICATION
     Dosage: UNK
     Route: 042
     Dates: start: 20050124, end: 20050124
  4. TRASYLOL [Suspect]
     Indication: CORONARY ARTERY BYPASS
     Dosage: 200CC FOLLOWED BY CONTINOUS INFUSION AT 50CC/HR
     Route: 042
     Dates: start: 20050124, end: 20050124
  5. HEPARIN [Concomitant]
     Dosage: 20000 UNITS
     Route: 042
     Dates: start: 20050124, end: 20050124
  6. HEPARIN [Concomitant]
     Dosage: 50 MG, UNK
     Route: 042
     Dates: start: 20050124, end: 20050124
  7. PLAVIX [Concomitant]
     Indication: PRODUCT USED FOR UNKNOWN INDICATION
     Dosage: 75 MG, QD
     Route: 048
     Dates: start: 20050120, end: 20050124
  8. MUCOMYST [Concomitant]
     Indication: PRODUCT USED FOR UNKNOWN INDICATION
     Dosage: 600 MG, UNK
     Route: 048
     Dates: start: 20050120, end: 20050124
  9. ASPIRIN [Concomitant]
     Indication: PRODUCT USED FOR UNKNOWN INDICATION
     Dosage: 325 MG, UNK
     Route: 048
     Dates: start: 20050119, end: 20050125
  10. CRESTOR [Concomitant]
     Indication: PRODUCT USED FOR UNKNOWN INDICATION
     Dosage: 10 MG, QD
     Route: 048
     Dates: start: 20050120, end: 20050124
  11. HEPARIN [Concomitant]
     Indication: PRODUCT USED FOR UNKNOWN INDICATION
     Dosage: 2000 UNITS
     Route: 042
     Dates: start: 20050121, end: 20050121
  12. DOBUTAMINE HCL [Concomitant]
     Indication: PRODUCT USED FOR UNKNOWN INDICATION
     Dosage: UNK
     Route: 042
     Dates: start: 20050124, end: 20050124
  13. LOVENOX [Concomitant]
     Indication: PRODUCT USED FOR UNKNOWN INDICATION
     Dosage: 10 MG, UNK
     Route: 058
     Dates: start: 20050120, end: 20050124
  14. NITROGLYCERIN [Concomitant]
     Indication: PRODUCT USED FOR UNKNOWN INDICATION
     Dosage: 1^ TO ANTERIOR CHEST
     Route: 061
     Dates: start: 20050120, end: 20050124
  15. ZESTRIL [Concomitant]
     Indication: PRODUCT USED FOR UNKNOWN INDICATION
     Dosage: 40 MG, QD
     Route: 048
     Dates: start: 20050119, end: 20050124

REACTIONS (9)
  - STRESS [None]
  - RENAL IMPAIRMENT [None]
  - FEAR [None]
  - ANXIETY [None]
  - RENAL INJURY [None]
  - UNEVALUABLE EVENT [None]
  - EMOTIONAL DISTRESS [None]
  - PAIN [None]
  - RENAL FAILURE [None]
